FAERS Safety Report 19363385 (Version 1)
Quarter: 2021Q2

REPORT INFORMATION
  Report Type: Spontaneous
  Country: GB (occurrence: GB)
  Receive Date: 20210602
  Receipt Date: 20210602
  Transmission Date: 20210717
  Serious: Yes (Other)
  Sender: FDA-Public Use
  Company Number: GB-ANIPHARMA-2021-UK-000161

PATIENT
  Age: 83 Year
  Sex: Female
  Weight: 56 kg

DRUGS (7)
  1. RAMIPRIL. [Concomitant]
     Active Substance: RAMIPRIL
     Dosage: AKE ONE DAILY FOR 1 WEEK THEN 2 DAILY
     Route: 065
     Dates: start: 20210429
  2. CANDESARTAN CILEXETIL. [Suspect]
     Active Substance: CANDESARTAN CILEXETIL
     Indication: PRODUCT USED FOR UNKNOWN INDICATION
     Dosage: 4 MG TAKE ONE TABLET ONCE DAILY FOR 1 WEEK THEN 2 TABLETS DAILY
     Route: 048
     Dates: start: 20210517
  3. CETIRIZINE [Concomitant]
     Active Substance: CETIRIZINE HYDROCHLORIDE
     Dosage: 1 DF QD
     Route: 065
     Dates: start: 20210521
  4. SIMVASTATIN. [Concomitant]
     Active Substance: SIMVASTATIN
     Dosage: 1 DF HS
     Route: 065
     Dates: start: 20210217
  5. BENDROFLUMETHIAZIDE [Concomitant]
     Active Substance: BENDROFLUMETHIAZIDE
     Dosage: 1  DF QD
     Route: 065
     Dates: start: 20210217, end: 20210416
  6. PERINDOPRIL ERBUMINE. [Concomitant]
     Active Substance: PERINDOPRIL ERBUMINE
     Dosage: 1 DF QD
     Route: 065
     Dates: start: 20210217, end: 20210416
  7. DOXAZOSIN [Concomitant]
     Active Substance: DOXAZOSIN MESYLATE
     Dosage: 1 DF QD
     Route: 065
     Dates: start: 20210217, end: 20210416

REACTIONS (3)
  - Burning sensation [Unknown]
  - Rash [Recovering/Resolving]
  - Erythema [Unknown]

NARRATIVE: CASE EVENT DATE: 20210321
